FAERS Safety Report 17104174 (Version 1)
Quarter: 2019Q4

REPORT INFORMATION
  Report Type: Spontaneous
  Country: US (occurrence: US)
  Receive Date: 20191107
  Receipt Date: 20191107
  Transmission Date: 20200122
  Serious: No
  Sender: FDA-Public Use
  Company Number: None

PATIENT
  Age: 63 Year
  Sex: Male

DRUGS (1)
  1. TYBOST [Suspect]
     Active Substance: COBICISTAT
     Indication: HIV INFECTION
     Route: 048
     Dates: start: 201904

REACTIONS (1)
  - Muscle atrophy [None]

NARRATIVE: CASE EVENT DATE: 20190601
